FAERS Safety Report 8544552 (Version 3)
Quarter: 2012Q4

REPORT INFORMATION
  Report Type: Report from Study
  Country: DK (occurrence: DK)
  Receive Date: 20120503
  Receipt Date: 20120905
  Transmission Date: 20130627
  Serious: Yes (Death, Life-Threatening, Hospitalization, Other)
  Sender: FDA-Public Use
  Company Number: DK-ROCHE-725793

PATIENT
  Age: 57 Year
  Sex: Male
  Weight: 75 kg

DRUGS (13)
  1. MABTHERA [Suspect]
     Indication: CHRONIC LYMPHOCYTIC LEUKAEMIA
     Route: 042
  2. MABTHERA [Suspect]
     Dosage: LAST DOSE PRIOR TO SAE 08 OCT 2010
     Route: 042
  3. MABTHERA [Suspect]
     Dosage: DATE OF LAST DOSE: 19 NOVEMBER  2010
     Route: 042
  4. FLUDARABINE PHOSPHATE [Suspect]
     Indication: CHRONIC LYMPHOCYTIC LEUKAEMIA
     Route: 042
  5. FLUDARABINE PHOSPHATE [Suspect]
     Route: 042
  6. FLUDARABINE PHOSPHATE [Suspect]
     Dosage: DATE OF LAST DOSE: 19 NOVEMBER 2010.
     Route: 042
  7. CYCLOPHOSPHAMIDE [Suspect]
     Indication: CHRONIC LYMPHOCYTIC LEUKAEMIA
     Route: 042
  8. CYCLOPHOSPHAMIDE [Suspect]
     Dosage: LAST DOSE PRIOR TO SAE 08 OCT 2010
     Route: 042
  9. CYCLOPHOSPHAMIDE [Suspect]
     Dosage: DATE OF LAST DOSE: 19 NOVEMBER 2010.
     Route: 042
  10. ACICLODAN [Concomitant]
     Dosage: FREQUENCY:DAILY
     Route: 065
  11. ACICLODAN [Concomitant]
     Route: 065
     Dates: start: 20101014, end: 20110103
  12. ACICLODAN [Concomitant]
     Route: 065
     Dates: start: 20110102, end: 20110109
  13. SULFAMETHOXAZOLE/TRIMETHOPRIM [Concomitant]
     Dosage: TDD: 400/80 MG
     Route: 065
     Dates: start: 20100824, end: 20101103

REACTIONS (4)
  - Febrile neutropenia [Fatal]
  - Leukoencephalopathy [Not Recovered/Not Resolved]
  - Infection [Recovered/Resolved]
  - Neutropenic infection [Unknown]
